FAERS Safety Report 13341193 (Version 1)
Quarter: 2017Q1

REPORT INFORMATION
  Report Type: Not Available
  Country: None (occurrence: US)
  Receive Date: 20170316
  Receipt Date: 20170316
  Transmission Date: 20170428
  Serious: No
  Sender: FDA-Public Use
  Company Number: US-AKORN-48534

PATIENT
  Sex: Male

DRUGS (1)
  1. LORAZEPAM ORAL CONCENTRATE, USP [Suspect]
     Active Substance: LORAZEPAM

REACTIONS (1)
  - Drug ineffective [Unknown]
